FAERS Safety Report 5396792-8 (Version None)
Quarter: 2007Q3

REPORT INFORMATION
  Report Type: 
  Country: None (occurrence: None)
  Receive Date: 20070725
  Receipt Date: 20070520
  Transmission Date: 20080115
  Serious: Yes (Other)
  Sender: FDA-Public Use
  Company Number: CN-ROCHE-498408

PATIENT
  Age: 46 Year
  Sex: Female

DRUGS (1)
  1. PEGASYS [Suspect]
     Indication: HEPATITIS C
     Dosage: ROUTE: HYPO. DOSAGE: ONE VIAL PER WEEK.
     Route: 050
     Dates: start: 20070101

REACTIONS (4)
  - EYE SWELLING [None]
  - GINGIVAL DISORDER [None]
  - PHOTOPHOBIA [None]
  - SUICIDE ATTEMPT [None]
